FAERS Safety Report 11258516 (Version 1)
Quarter: 2015Q3

REPORT INFORMATION
  Report Type: Spontaneous
  Country: AU (occurrence: None)
  Receive Date: 20150708
  Receipt Date: 20150708
  Transmission Date: 20151125
  Serious: Yes (Other)
  Sender: FDA-Public Use
  Company Number: 2015FE01999

PATIENT
  Age: 82 Year
  Sex: Male

DRUGS (1)
  1. FIRMAGON [Suspect]
     Active Substance: DEGARELIX ACETATE
     Indication: PROSTATE CANCER
     Dosage: 80 MG, MONTHLY
     Dates: start: 20150408

REACTIONS (3)
  - Muscle twitching [None]
  - Dyskinesia [None]
  - Dysarthria [None]

NARRATIVE: CASE EVENT DATE: 20150507
